FAERS Safety Report 6307644-0 (Version None)
Quarter: 2009Q3

REPORT INFORMATION
  Report Type: 
  Country: None (occurrence: None)
  Receive Date: 20090813
  Receipt Date: 20090803
  Transmission Date: 20100115
  Serious: Yes (Other)
  Sender: FDA-Public Use
  Company Number: PHHY2009BR32852

PATIENT
  Age: 72 Year
  Sex: Female

DRUGS (2)
  1. FORASEQ [Suspect]
     Indication: EMPHYSEMA
     Dosage: ONE CAPSULE OF EACH ACTIVE TWO TIMES DAILY
     Dates: start: 20050101
  2. PURAN T4 [Concomitant]
     Indication: THYROID DISORDER
     Dosage: ONE TABLET/DAY
     Route: 048

REACTIONS (1)
  - LUNG NEOPLASM MALIGNANT [None]
